FAERS Safety Report 12011052 (Version 1)
Quarter: 2016Q1

REPORT INFORMATION
  Report Type: Spontaneous
  Country: JP (occurrence: JP)
  Receive Date: 20160205
  Receipt Date: 20160205
  Transmission Date: 20160526
  Serious: Yes (Other)
  Sender: FDA-Public Use
  Company Number: JP-VALIDUS PHARMACEUTICALS LLC-JP-2015VAL000184

PATIENT
  Age: 81 Year
  Sex: Male

DRUGS (1)
  1. PARLODEL [Suspect]
     Active Substance: BROMOCRIPTINE MESYLATE
     Indication: PITUITARY TUMOUR
     Dosage: 2.5 MG, QD
     Route: 048

REACTIONS (1)
  - Neoplasm of appendix [Unknown]
